FAERS Safety Report 10170825 (Version 1)
Quarter: 2014Q2

REPORT INFORMATION
  Report Type: Report from Study
  Country: CH (occurrence: CH)
  Receive Date: 20140514
  Receipt Date: 20140514
  Transmission Date: 20141212
  Serious: Yes (Other)
  Sender: FDA-Public Use
  Company Number: CH-BRISTOL-MYERS SQUIBB COMPANY-20705315

PATIENT
  Age: 23 Year
  Sex: Male
  Weight: 75 kg

DRUGS (11)
  1. ETOPOSIDE [Suspect]
     Indication: ACUTE MYELOID LEUKAEMIA
     Route: 041
     Dates: start: 20041112, end: 2005
  2. DAUNORUBICIN [Suspect]
     Indication: ACUTE MYELOID LEUKAEMIA
     Route: 041
     Dates: start: 20041112, end: 2005
  3. MITOXANTRONE [Suspect]
     Indication: ACUTE MYELOID LEUKAEMIA
     Route: 041
     Dates: start: 2005, end: 2005
  4. GEMTUZUMAB OZOGAMICIN [Suspect]
     Indication: ACUTE MYELOID LEUKAEMIA
     Route: 041
     Dates: start: 20041112, end: 2005
  5. CYTARABINE [Suspect]
     Indication: ACUTE MYELOID LEUKAEMIA
     Dosage: 12-NOV-2004 TO 18-APR-2005?AND ALSO RECEIVED AT DOSE OF 2000 MG/M2 PER DAY ON DAY 1-5
     Dates: start: 20041112
  6. L-ASPARAGINASE [Suspect]
     Indication: ACUTE MYELOID LEUKAEMIA
     Dosage: 1DF:6000 U/M2 ON DAY 2,9
     Route: 030
     Dates: start: 20041112
  7. FLUDARABINE [Suspect]
     Indication: ACUTE MYELOID LEUKAEMIA RECURRENT
  8. GRANULOCYTE COLONY-STIMULATING FACTOR NOS [Suspect]
     Indication: ACUTE MYELOID LEUKAEMIA
     Dosage: 1 DF = 5 MICROGRAM/KILOGRAM
  9. ENDOXAN [Suspect]
     Indication: ACUTE MYELOID LEUKAEMIA RECURRENT
     Dosage: INFUSION,AMPOULES,DRY VIALS/BOTTLES
     Route: 041
     Dates: start: 20060303, end: 20060303
  10. BUSULFEX [Suspect]
     Indication: ACUTE MYELOID LEUKAEMIA RECURRENT
     Dates: start: 20060303, end: 20060303
  11. ALKERAN [Suspect]
     Indication: ACUTE MYELOID LEUKAEMIA RECURRENT
     Dosage: COATED TABLETS,FILM.
     Route: 048
     Dates: start: 20060303, end: 20060303

REACTIONS (2)
  - Cardiotoxicity [Unknown]
  - Ejection fraction decreased [Unknown]
